FAERS Safety Report 4604807-7 (Version None)
Quarter: 2005Q2

REPORT INFORMATION
  Report Type: 
  Country: None (occurrence: None)
  Receive Date: 20050217
  Receipt Date: 20041110
  Transmission Date: 20051028
  Serious: No
  Sender: FDA-Public Use
  Company Number: S04-USA-07336-01

PATIENT
  Age: 82 Year
  Sex: Male

DRUGS (6)
  1. NAMENDA [Suspect]
     Indication: DEMENTIA ALZHEIMER'S TYPE
     Dosage: 5 MG QD PO
     Route: 048
     Dates: start: 20041105
  2. NORVASC [Concomitant]
  3. COZAAR [Concomitant]
  4. PRILOSEC [Concomitant]
  5. ZOCOR [Concomitant]
  6. CELEBREX [Concomitant]

REACTIONS (3)
  - ARTHRALGIA [None]
  - FLATULENCE [None]
  - NECK PAIN [None]
